FAERS Safety Report 7874533-X (Version None)
Quarter: 2011Q4

REPORT INFORMATION
  Report Type: 
  Country: None (occurrence: None)
  Receive Date: 20111030
  Receipt Date: 20111019
  Transmission Date: 20120403
  Serious: Yes (Death, Life-Threatening, Disabling, Other)
  Sender: FDA-Public Use
  Company Number: TW-SANOFI-AVENTIS-2011SA068416

PATIENT
  Age: 72 Year
  Sex: Male
  Weight: 58.2 kg

DRUGS (7)
  1. BLINDED THERAPY [Suspect]
     Indication: ACUTE CORONARY SYNDROME
     Route: 042
     Dates: start: 20111013, end: 20111013
  2. HEPARIN [Concomitant]
     Dosage: DOSE:2700 UNIT(S)
     Route: 041
     Dates: start: 20111014, end: 20111014
  3. PLAVIX [Suspect]
     Route: 048
     Dates: start: 20111013, end: 20111013
  4. ASPIRIN [Suspect]
     Indication: ACUTE CORONARY SYNDROME
     Route: 048
     Dates: start: 20111012, end: 20111012
  5. PLAVIX [Suspect]
     Indication: ACUTE CORONARY SYNDROME
     Route: 048
     Dates: start: 20111012, end: 20111012
  6. HEPARIN [Concomitant]
     Dosage: DOSE:5950 UNIT(S)
     Route: 041
     Dates: start: 20111012, end: 20111013
  7. ASPIRIN [Suspect]
     Route: 048
     Dates: start: 20111013, end: 20111013

REACTIONS (5)
  - CARDIAC TAMPONADE [None]
  - ACUTE PULMONARY OEDEMA [None]
  - UPPER GASTROINTESTINAL HAEMORRHAGE [None]
  - MULTI-ORGAN FAILURE [None]
  - THROMBOCYTOPENIA [None]
